FAERS Safety Report 15669496 (Version 2)
Quarter: 2019Q1

REPORT INFORMATION
  Report Type: Spontaneous
  Country: US (occurrence: US)
  Receive Date: 20181129
  Receipt Date: 20190131
  Transmission Date: 20190417
  Serious: Yes (Other)
  Sender: FDA-Public Use
  Company Number: US-BAYER-2018-218337

PATIENT
  Age: 38 Year
  Sex: Female

DRUGS (12)
  1. MIRENA [Suspect]
     Active Substance: LEVONORGESTREL
     Indication: CONTRACEPTION
  2. MIRENA [Suspect]
     Active Substance: LEVONORGESTREL
     Indication: CONTRACEPTION
     Dosage: 20 MCG/24HR, CONT
     Route: 015
     Dates: start: 201810
  3. CYMBALTA [Concomitant]
     Active Substance: DULOXETINE HYDROCHLORIDE
  4. LUMIGAN [Concomitant]
     Active Substance: BIMATOPROST
  5. TRAVATAN [Concomitant]
     Active Substance: TRAVOPROST
  6. CELLCEPT [Concomitant]
     Active Substance: MYCOPHENOLATE MOFETIL\MYCOPHENOLATE MOFETIL HYDROCHLORIDE
  7. LOSARTAN. [Concomitant]
     Active Substance: LOSARTAN
  8. ALPHAGAN P [Concomitant]
     Active Substance: BRIMONIDINE TARTRATE
  9. XANAX [Concomitant]
     Active Substance: ALPRAZOLAM
  10. SYNTHROID [Concomitant]
     Active Substance: LEVOTHYROXINE SODIUM
  11. TRAMADOL. [Concomitant]
     Active Substance: TRAMADOL
  12. NORCO [Concomitant]
     Active Substance: ACETAMINOPHEN\HYDROCODONE BITARTRATE

REACTIONS (5)
  - Dysfunctional uterine bleeding [Not Recovered/Not Resolved]
  - Genital haemorrhage [None]
  - Device expulsion [Not Recovered/Not Resolved]
  - Ovarian cyst [None]
  - Pain [Not Recovered/Not Resolved]

NARRATIVE: CASE EVENT DATE: 20181119
